FAERS Safety Report 9467403 (Version 1)
Quarter: 2013Q3

REPORT INFORMATION
  Report Type: Spontaneous
  Country: US (occurrence: None)
  Receive Date: 20130819
  Receipt Date: 20130819
  Transmission Date: 20140515
  Serious: Yes (Other)
  Sender: FDA-Public Use
  Company Number: None

PATIENT
  Age: 696 Month
  Sex: Female
  Weight: 80.74 kg

DRUGS (1)
  1. VANCOMYACIN [Suspect]

REACTIONS (4)
  - Skin reaction [None]
  - Erythema [None]
  - Red man syndrome [None]
  - Renal disorder [None]
